FAERS Safety Report 5632509-7 (Version None)
Quarter: 2008Q1

REPORT INFORMATION
  Report Type: 
  Country: None (occurrence: None)
  Receive Date: 20080219
  Receipt Date: 20080210
  Transmission Date: 20080703
  Serious: Yes (Other)
  Sender: FDA-Public Use
  Company Number: CHPA2008US02595

PATIENT
  Age: 16 Year
  Sex: Male

DRUGS (1)
  1. THERAFLU COLD AND SORE THROAT (NCH)(PHENIRAMINE MALEATE, PHENYLEPHRINE [Suspect]
     Indication: NASOPHARYNGITIS
     Dosage: 1 DF, ONCE/ SINGLE, ORAL
     Route: 048
     Dates: start: 20080209, end: 20080209

REACTIONS (2)
  - HALLUCINATION [None]
  - SLEEP DISORDER [None]
